FAERS Safety Report 8006889-1 (Version None)
Quarter: 2011Q4

REPORT INFORMATION
  Report Type: 
  Country: None (occurrence: None)
  Receive Date: 20111227
  Receipt Date: 20111219
  Transmission Date: 20120403
  Serious: Yes (Hospitalization)
  Sender: FDA-Public Use
  Company Number: IL-TEVA-314579ISR

PATIENT
  Age: 54 Year
  Sex: Female

DRUGS (1)
  1. ETODOLAC [Suspect]
     Indication: BACK PAIN
     Dosage: 800 MILLIGRAM;

REACTIONS (1)
  - COLITIS MICROSCOPIC [None]
